FAERS Safety Report 9669650 (Version 1)
Quarter: 2013Q4

REPORT INFORMATION
  Report Type: Spontaneous
  Country: FR (occurrence: None)
  Receive Date: 20131101
  Receipt Date: 20131101
  Transmission Date: 20140711
  Serious: Yes (Hospitalization)
  Sender: FDA-Public Use
  Company Number: FR-20130419

PATIENT
  Age: 67 Year
  Sex: Female

DRUGS (1)
  1. HEXABRIX [Suspect]
     Indication: ARTERIOGRAM CORONARY
     Dosage: (NOT OTHERWISE SPECIFIED)
     Route: 042
     Dates: start: 20131001, end: 20131001

REACTIONS (5)
  - Erythema [None]
  - Dyspnoea [None]
  - Dysphonia [None]
  - Hypotension [None]
  - Eyelid oedema [None]
